FAERS Safety Report 22194041 (Version 1)
Quarter: 2023Q2

REPORT INFORMATION
  Report Type: Spontaneous
  Country: US (occurrence: US)
  Receive Date: 20230411
  Receipt Date: 20230411
  Transmission Date: 20230721
  Serious: Yes (Life-Threatening, Hospitalization)
  Sender: FDA-Public Use
  Company Number: US-ENDO PHARMACEUTICALS INC-2023-001432

PATIENT
  Age: 47 Year
  Sex: Female

DRUGS (1)
  1. ADRENALIN [Suspect]
     Active Substance: EPINEPHRINE
     Indication: Anaphylactic reaction
     Dosage: 0.3 MG, SINGLE (1:1000)
     Route: 042

REACTIONS (6)
  - Cardiac arrest [Recovered/Resolved with Sequelae]
  - Cardiac failure acute [Recovered/Resolved with Sequelae]
  - Cardiogenic shock [Recovered/Resolved with Sequelae]
  - Stress cardiomyopathy [Recovered/Resolved]
  - Accidental overdose [Recovered/Resolved]
  - Incorrect route of product administration [Recovered/Resolved]
